FAERS Safety Report 23665138 (Version 1)
Quarter: 2024Q1

REPORT INFORMATION
  Report Type: Spontaneous
  Country: FR (occurrence: FR)
  Receive Date: 20240322
  Receipt Date: 20240322
  Transmission Date: 20240410
  Serious: Yes (Other)
  Sender: FDA-Public Use
  Company Number: FR-ANIPHARMA-2024-FR-000052

PATIENT
  Age: 63 Year
  Sex: Male

DRUGS (11)
  1. CANDESARTAN [Suspect]
     Active Substance: CANDESARTAN
     Indication: Hypertension
     Dates: start: 2017
  2. ATORVASTATIN [Suspect]
     Active Substance: ATORVASTATIN
     Dates: start: 2017
  3. LEUCOVORIN CALCIUM [Suspect]
     Active Substance: LEUCOVORIN CALCIUM
     Dates: start: 202311
  4. BISOPROLOL FUMARATE [Suspect]
     Active Substance: BISOPROLOL FUMARATE
     Dates: start: 2017
  5. ACETAMINOPHEN [Suspect]
     Active Substance: ACETAMINOPHEN
  6. RITUXIMAB [Suspect]
     Active Substance: RITUXIMAB
     Dosage: 375 MG TIWK / 375 MG TIWK
     Dates: start: 202211, end: 202211
  7. NITROGLYCERIN [Suspect]
     Active Substance: NITROGLYCERIN
  8. BACTRIM [Suspect]
     Active Substance: SULFAMETHOXAZOLE\TRIMETHOPRIM
     Dates: start: 202311
  9. KARDEGIC [Suspect]
     Active Substance: ASPIRIN DL-LYSINE
     Dates: start: 2017
  10. VALACYCLOVIR HYDROCHLORIDE [Suspect]
     Active Substance: VALACYCLOVIR HYDROCHLORIDE
     Dates: start: 202311
  11. LERCANIDIPINE [Suspect]
     Active Substance: LERCANIDIPINE

REACTIONS (1)
  - Interstitial lung disease [Unknown]

NARRATIVE: CASE EVENT DATE: 20240101
